FAERS Safety Report 8161392-3 (Version None)
Quarter: 2012Q1

REPORT INFORMATION
  Report Type: 
  Country: None (occurrence: None)
  Receive Date: 20120224
  Receipt Date: 20120127
  Transmission Date: 20120608
  Serious: No
  Sender: FDA-Public Use
  Company Number: US-ALLERGAN-1201302US

PATIENT
  Sex: Male

DRUGS (1)
  1. LASTACAFT [Suspect]
     Indication: KERATITIS HERPETIC
     Dosage: 1 GTT, QD
     Route: 047
     Dates: start: 20120112

REACTIONS (3)
  - VISUAL ACUITY REDUCED [None]
  - EYELID PTOSIS [None]
  - EYE SWELLING [None]
